FAERS Safety Report 12004510 (Version 1)
Quarter: 2016Q1

REPORT INFORMATION
  Report Type: Spontaneous
  Country: SG (occurrence: SG)
  Receive Date: 20160204
  Receipt Date: 20160204
  Transmission Date: 20160526
  Serious: Yes (Hospitalization)
  Sender: FDA-Public Use
  Company Number: SG-ASTRAZENECA-2016SE09786

PATIENT
  Sex: Female
  Weight: 52 kg

DRUGS (2)
  1. TAGRISSO [Suspect]
     Active Substance: OSIMERTINIB
     Dosage: AT NIGHT
     Route: 048
     Dates: start: 20160113, end: 20160114
  2. TAGRISSO [Suspect]
     Active Substance: OSIMERTINIB
     Dosage: AT NIGHT
     Route: 048

REACTIONS (3)
  - Hyporesponsive to stimuli [Recovered/Resolved]
  - Pneumonia aspiration [Recovered/Resolved]
  - Dyspnoea [Recovered/Resolved]

NARRATIVE: CASE EVENT DATE: 20160113
